FAERS Safety Report 5163817-4 (Version None)
Quarter: 2006Q4

REPORT INFORMATION
  Report Type: 
  Country: None (occurrence: None)
  Receive Date: 20061124
  Receipt Date: 20061109
  Transmission Date: 20070319
  Serious: Yes (Hospitalization)
  Sender: FDA-Public Use
  Company Number: 2005130618

PATIENT
  Age: 72 Year
  Sex: Female
  Weight: 71.2147 kg

DRUGS (1)
  1. BEXTRA [Suspect]
     Indication: ARTHRALGIA
     Dosage: 1 PER DAY OR AT TIMES 2 PER DAY (10 MG, 1 D)
     Dates: start: 20020701

REACTIONS (1)
  - STEVENS-JOHNSON SYNDROME [None]
